FAERS Safety Report 13756478 (Version 1)
Quarter: 2017Q3

REPORT INFORMATION
  Report Type: Spontaneous
  Country: CN (occurrence: CN)
  Receive Date: 20170714
  Receipt Date: 20170714
  Transmission Date: 20171127
  Serious: Yes (Other)
  Sender: FDA-Public Use
  Company Number: CN-JNJFOC-20170707939

PATIENT

DRUGS (2)
  1. PALIPERIDONE. [Suspect]
     Active Substance: PALIPERIDONE
     Indication: PSYCHOTIC DISORDER
     Route: 065
  2. RISPERIDONE. [Suspect]
     Active Substance: RISPERIDONE
     Indication: PSYCHOTIC DISORDER
     Route: 065

REACTIONS (33)
  - Intestinal obstruction [Unknown]
  - Dystonia [Unknown]
  - Dry mouth [Unknown]
  - Somnolence [Unknown]
  - Hypothyroidism [Unknown]
  - Erectile dysfunction [Unknown]
  - Blood prolactin increased [Unknown]
  - Lipids increased [Unknown]
  - Body mass index increased [Unknown]
  - Asthenia [Unknown]
  - Electrocardiogram QT prolonged [Unknown]
  - Tardive dyskinesia [Unknown]
  - Dysuria [Unknown]
  - Total bile acids increased [Unknown]
  - Salivary hypersecretion [Unknown]
  - Incontinence [Unknown]
  - Vomiting [Unknown]
  - Eyelid ptosis [Unknown]
  - Sexual dysfunction [Unknown]
  - Blood glucose increased [Unknown]
  - Tachycardia [Unknown]
  - Sedation [Unknown]
  - Oculogyric crisis [Unknown]
  - Menstrual disorder [Unknown]
  - Diarrhoea [Unknown]
  - Liver function test increased [Unknown]
  - Urinary retention [Unknown]
  - Arrhythmia [Unknown]
  - Gastric ulcer [Unknown]
  - Blood uric acid increased [Unknown]
  - Constipation [Unknown]
  - Tremor [Unknown]
  - Oedema peripheral [Unknown]
